FAERS Safety Report 6464294-3 (Version None)
Quarter: 2009Q4

REPORT INFORMATION
  Report Type: 
  Country: None (occurrence: None)
  Receive Date: 20091116
  Receipt Date: 20090804
  Transmission Date: 20100525
  Serious: No
  Sender: FDA-Public Use
  Company Number: WAES 0908USA00890

PATIENT
  Sex: Male

DRUGS (2)
  1. ISENTRESS [Suspect]
     Dosage: PO
     Route: 048
  2. TRUVADA [Concomitant]

REACTIONS (1)
  - RASH GENERALISED [None]
